FAERS Safety Report 8348679-6 (Version None)
Quarter: 2012Q2

REPORT INFORMATION
  Report Type: 
  Country: None (occurrence: None)
  Receive Date: 20120510
  Receipt Date: 20120427
  Transmission Date: 20120825
  Serious: Yes (Hospitalization)
  Sender: FDA-Public Use
  Company Number: US-ELI_LILLY_AND_COMPANY-US201202005108

PATIENT
  Sex: Female
  Weight: 64 kg

DRUGS (21)
  1. LOSARTAN POTASSIUM [Concomitant]
  2. PLAQUENIL [Concomitant]
  3. FORTEO [Suspect]
     Indication: OSTEOPOROSIS
     Dosage: 20 UG, QD
     Route: 058
  4. FORTEO [Suspect]
     Dosage: 20 UG, QD
     Route: 058
     Dates: start: 20120208
  5. FORTEO [Suspect]
     Dosage: 20 UG, QD
     Route: 058
     Dates: start: 20120127, end: 20120131
  6. FERROUS GLUCONATE [Concomitant]
  7. MULTI-VITAMIN [Concomitant]
  8. LOMOTIL [Concomitant]
  9. TRIAMCINOLONE [Concomitant]
  10. VOLTAREN [Concomitant]
  11. CALCIUM [Concomitant]
  12. MULTI-VITAMINS [Concomitant]
  13. TRAMADOL HYDROCHLORIDE [Concomitant]
  14. PREDNISONE [Concomitant]
     Dosage: UNK
  15. IRON [Concomitant]
  16. TYLENOL                                 /SCH/ [Concomitant]
     Dosage: UNK, PRN
  17. FLONASE [Concomitant]
  18. RANITIDINE HCL [Concomitant]
  19. VITAMIN D [Concomitant]
  20. GLIPIZIDE [Concomitant]
  21. TOPICAL                            /00806601/ [Concomitant]

REACTIONS (1)
  - DIVERTICULITIS [None]
